FAERS Safety Report 10094072 (Version 1)
Quarter: 2014Q2

REPORT INFORMATION
  Report Type: Report from Study
  Country: US (occurrence: US)
  Receive Date: 20140422
  Receipt Date: 20140422
  Transmission Date: 20141212
  Serious: Yes (Other)
  Sender: FDA-Public Use
  Company Number: US-ROCHE-1386101

PATIENT
  Sex: Female
  Weight: 80.81 kg

DRUGS (3)
  1. ACTEMRA [Suspect]
     Indication: RHEUMATOID ARTHRITIS
     Dosage: 3 OR 4 YEARS AGO
     Route: 042
  2. FLEXERIL (UNITED STATES) [Concomitant]
  3. TRAMADOL [Concomitant]

REACTIONS (1)
  - Dermatitis [Recovering/Resolving]
